FAERS Safety Report 15636355 (Version 5)
Quarter: 2019Q1

REPORT INFORMATION
  Report Type: Report from Study
  Country: None (occurrence: CO)
  Receive Date: 20181120
  Receipt Date: 20190111
  Transmission Date: 20190417
  Serious: Yes (Death, Hospitalization, Other)
  Sender: FDA-Public Use
  Company Number: CO-ABBVIE-18K-036-2561800-00

PATIENT
  Sex: Female

DRUGS (2)
  1. HUMIRA [Suspect]
     Active Substance: ADALIMUMAB
     Indication: RHEUMATOID ARTHRITIS
     Route: 058
     Dates: start: 20130102, end: 20180930
  2. METHOTREXATE. [Concomitant]
     Active Substance: METHOTREXATE
     Indication: PRODUCT USED FOR UNKNOWN INDICATION

REACTIONS (11)
  - Procedural complication [Recovering/Resolving]
  - Disease risk factor [Unknown]
  - Procedural hypotension [Unknown]
  - Post procedural sepsis [Fatal]
  - Cholelithiasis [Recovering/Resolving]
  - Jaundice [Fatal]
  - Mobility decreased [Unknown]
  - Unresponsive to stimuli [Unknown]
  - Rheumatoid arthritis [Unknown]
  - Bacterial sepsis [Fatal]
  - Postoperative wound infection [Not Recovered/Not Resolved]

NARRATIVE: CASE EVENT DATE: 2018
